FAERS Safety Report 17882674 (Version 1)
Quarter: 2020Q2

REPORT INFORMATION
  Report Type: Spontaneous
  Country: US (occurrence: US)
  Receive Date: 20200610
  Receipt Date: 20200610
  Transmission Date: 20200714
  Serious: Yes (Other)
  Sender: FDA-Public Use
  Company Number: US-GILEAD-2020-0469816

PATIENT
  Age: 63 Year
  Sex: Female

DRUGS (13)
  1. HYDROCHLOROTHIAZIDE. [Concomitant]
     Active Substance: HYDROCHLOROTHIAZIDE
  2. DECADRON [Concomitant]
     Active Substance: DEXAMETHASONE
  3. MELATONIN [Concomitant]
     Active Substance: MELATONIN
  4. ENOXAPARIN [Concomitant]
     Active Substance: ENOXAPARIN
  5. REMDESIVIR. [Suspect]
     Active Substance: REMDESIVIR
     Indication: COVID-19
     Dosage: 200MG X 1, 100MG X 1
     Route: 042
     Dates: start: 20200521, end: 20200522
  6. REMDESIVIR. [Suspect]
     Active Substance: REMDESIVIR
     Dosage: 100 MG, QD
     Route: 042
     Dates: start: 20200523, end: 20200525
  7. INSULIN [Concomitant]
     Active Substance: INSULIN NOS
  8. SUCRALFATE. [Concomitant]
     Active Substance: SUCRALFATE
  9. MORPHINE [Concomitant]
     Active Substance: MORPHINE
  10. PANTOPRAZOLE [Concomitant]
     Active Substance: PANTOPRAZOLE
  11. CEFTRIAXONE. [Concomitant]
     Active Substance: CEFTRIAXONE
  12. ZINC. [Concomitant]
     Active Substance: ZINC
  13. ASCORBIC ACID. [Concomitant]
     Active Substance: ASCORBIC ACID

REACTIONS (1)
  - Atrial fibrillation [Unknown]

NARRATIVE: CASE EVENT DATE: 20200527
